FAERS Safety Report 16085039 (Version 1)
Quarter: 2019Q1

REPORT INFORMATION
  Report Type: Spontaneous
  Country: US (occurrence: US)
  Receive Date: 20190318
  Receipt Date: 20190318
  Transmission Date: 20190418
  Serious: Yes (Hospitalization)
  Sender: FDA-Public Use
  Company Number: US-LUNDBECK-DKLU2060546

PATIENT
  Sex: Male

DRUGS (1)
  1. NORTHERA [Suspect]
     Active Substance: DROXIDOPA
     Indication: PARKINSON^S DISEASE
     Route: 048

REACTIONS (8)
  - Palpitations [Unknown]
  - Blood pressure decreased [Not Recovered/Not Resolved]
  - Aggression [Unknown]
  - Fall [Unknown]
  - Neurological symptom [Unknown]
  - Pneumonia aspiration [Unknown]
  - Urinary tract infection [Not Recovered/Not Resolved]
  - Psychotic disorder [Unknown]

NARRATIVE: CASE EVENT DATE: 2018
